FAERS Safety Report 16171709 (Version 2)
Quarter: 2019Q2

REPORT INFORMATION
  Report Type: Report from Study
  Country: US (occurrence: US)
  Receive Date: 20190408
  Receipt Date: 20190605
  Transmission Date: 20190711
  Serious: Yes (Hospitalization)
  Sender: FDA-Public Use
  Company Number: US-EXELIXIS-XL18419019912

PATIENT
  Age: 62 Year
  Sex: Male
  Weight: 78.46 kg

DRUGS (2)
  1. XL184 [Suspect]
     Active Substance: CABOZANTINIB
     Indication: HEPATOCELLULAR CARCINOMA
     Dosage: 20 MG, QD
     Route: 048
     Dates: start: 20190101, end: 20190101
  2. DURVALUMAB. [Suspect]
     Active Substance: DURVALUMAB
     Indication: HEPATOCELLULAR CARCINOMA
     Dosage: 1500 MG Q28D
     Route: 042
     Dates: start: 20181204

REACTIONS (1)
  - Adrenal haemorrhage [Recovered/Resolved]

NARRATIVE: CASE EVENT DATE: 20190324
